FAERS Safety Report 4586992-9 (Version None)
Quarter: 2005Q1

REPORT INFORMATION
  Report Type: 
  Country: None (occurrence: None)
  Receive Date: 20050218
  Receipt Date: 20050113
  Transmission Date: 20050727
  Serious: Yes (Hospitalization, Other)
  Sender: FDA-Public Use
  Company Number: US-MERCK-0501USA02770

PATIENT
  Age: 16 Year
  Sex: Female

DRUGS (2)
  1. ELSPAR [Suspect]
     Indication: ACUTE LYMPHOCYTIC LEUKAEMIA
     Route: 041
  2. PREDNISOLONE [Suspect]
     Route: 065

REACTIONS (5)
  - ANGINA PECTORIS [None]
  - DYSPNOEA [None]
  - HEPATIC ENZYME INCREASED [None]
  - HYPERLIPIDAEMIA [None]
  - LETHARGY [None]
